FAERS Safety Report 4741594-6 (Version None)
Quarter: 2005Q3

REPORT INFORMATION
  Report Type: 
  Country: None (occurrence: None)
  Receive Date: 20050808
  Receipt Date: 20050725
  Transmission Date: 20060218
  Serious: Yes (Other)
  Sender: FDA-Public Use
  Company Number: EWC050745139

PATIENT
  Age: 68 Year
  Sex: Male

DRUGS (3)
  1. CYMBALTA [Suspect]
     Indication: DEPRESSION
     Dosage: 60 MG DAY
     Dates: start: 20050516, end: 20050628
  2. CYMBALTA [Suspect]
     Indication: PAIN
     Dosage: 60 MG DAY
     Dates: start: 20050516, end: 20050628
  3. CYMBALTA [Suspect]
     Indication: SOMATOFORM DISORDER
     Dosage: 60 MG DAY
     Dates: start: 20050516, end: 20050628

REACTIONS (5)
  - ASTHENIA [None]
  - DIZZINESS [None]
  - HYPOTENSION [None]
  - HYPOTONIA [None]
  - SYNCOPE [None]
